FAERS Safety Report 5716749-4 (Version None)
Quarter: 2008Q2

REPORT INFORMATION
  Report Type: 
  Country: None (occurrence: None)
  Receive Date: 20080424
  Receipt Date: 20070601
  Transmission Date: 20081010
  Serious: No
  Sender: FDA-Public Use
  Company Number: US-BAYER-200711623BWH

PATIENT
  Age: 85 Year
  Sex: Male

DRUGS (6)
  1. LEVITRA [Suspect]
     Indication: DRUG USE FOR UNKNOWN INDICATION
     Dosage: TOTAL DAILY DOSE: 20 MG  UNIT DOSE: 20 MG
     Route: 048
     Dates: start: 20070301
  2. AVAPRO [Concomitant]
     Indication: HYPERTENSION
  3. FLOMAX [Concomitant]
     Indication: PROSTATIC DISORDER
  4. AVODART [Concomitant]
     Indication: PROSTATIC DISORDER
  5. PLAVIX [Concomitant]
     Indication: ISCHAEMIC HEART DISEASE PROPHYLAXIS
  6. ASPIRIN [Concomitant]
     Indication: ISCHAEMIC HEART DISEASE PROPHYLAXIS

REACTIONS (1)
  - ERECTILE DYSFUNCTION [None]
